FAERS Safety Report 5080123-7 (Version None)
Quarter: 2006Q3

REPORT INFORMATION
  Report Type: 
  Country: None (occurrence: None)
  Receive Date: 20060810
  Receipt Date: 20060726
  Transmission Date: 20061208
  Serious: Yes (Hospitalization)
  Sender: FDA-Public Use
  Company Number: 2006PV018528

PATIENT
  Age: 59 Year
  Sex: Male
  Weight: 107.9561 kg

DRUGS (12)
  1. BYETTA [Suspect]
     Indication: DIABETES MELLITUS NON-INSULIN-DEPENDENT
     Dosage: 10 MCG; BID; SC
     Route: 058
     Dates: start: 20060501
  2. BYETTA [Suspect]
     Dosage: 5 MCG; BID; SC
     Route: 058
     Dates: start: 20060401, end: 20060501
  3. GLUCOTROL XL [Concomitant]
  4. AVANDIA [Concomitant]
  5. GLUCOPHAGE [Concomitant]
  6. PRINIVIL [Concomitant]
  7. COREG [Concomitant]
  8. ASPIRIN [Concomitant]
  9. ZOCOR [Concomitant]
  10. NEXIUM [Concomitant]
  11. NITRO [Concomitant]
  12. HYDROCHLOROTHIAZIDE [Concomitant]

REACTIONS (2)
  - BLOOD CREATININE INCREASED [None]
  - NON-CARDIAC CHEST PAIN [None]
